FAERS Safety Report 7883602-X (Version None)
Quarter: 2011Q4

REPORT INFORMATION
  Report Type: 
  Country: None (occurrence: None)
  Receive Date: 20111102
  Receipt Date: 20111024
  Transmission Date: 20120403
  Serious: Yes (Hospitalization)
  Sender: FDA-Public Use
  Company Number: DE-CELGENEUS-062-C5013-11040372

PATIENT
  Age: 72 Year
  Sex: Male
  Weight: 54 kg

DRUGS (42)
  1. CALCIUM [Concomitant]
     Dosage: 2 GRAM
     Route: 048
     Dates: start: 20110504, end: 20110508
  2. ALENDRONIC ACID [Concomitant]
     Indication: OSTEOPOROSIS
     Dosage: 10 MILLIGRAM
     Route: 048
     Dates: start: 20110321, end: 20110520
  3. METAMIZOLE [Concomitant]
     Dosage: 120 DROPS
     Route: 048
     Dates: start: 20110311, end: 20110320
  4. HYDROCHLOROTHIAZID [Concomitant]
     Dosage: 25 MILLIGRAM
     Route: 048
     Dates: start: 20100201, end: 20110311
  5. LENALIDOMIDE [Suspect]
     Dosage: 10 MILLIGRAM
     Route: 048
     Dates: start: 20110323, end: 20110330
  6. ENALAPRIL [Concomitant]
     Dosage: 10 MILLIGRAM
     Route: 048
     Dates: start: 20100201, end: 20110311
  7. FORMOTEROL FUMARATE [Concomitant]
     Indication: CHRONIC OBSTRUCTIVE PULMONARY DISEASE
     Dosage: 1
     Route: 055
     Dates: start: 20100601, end: 20110408
  8. CALCIUM [Concomitant]
     Indication: OSTEOPOROSIS
     Dosage: 500 MILLIGRAM
     Route: 048
     Dates: start: 20110316, end: 20110409
  9. AMIODARONE HCL [Concomitant]
     Dosage: 200 MILLIGRAM
     Route: 048
     Dates: start: 20110328
  10. METAMIZOLE [Concomitant]
     Dosage: 80 DROPS
     Route: 048
     Dates: start: 20110321, end: 20110330
  11. PHYTOMENADION [Concomitant]
     Dosage: 2 MILLIGRAM
     Route: 041
     Dates: start: 20110415, end: 20110415
  12. FUROSEMIDE [Concomitant]
     Indication: PLEURAL EFFUSION
     Dosage: 60 MILLIGRAM
     Route: 041
     Dates: start: 20110323, end: 20110417
  13. FUROSEMIDE [Concomitant]
     Dosage: 40 MILLIGRAM
     Route: 048
     Dates: start: 20110504, end: 20110508
  14. DEFERASIROX [Concomitant]
     Dosage: 500 MILLIGRAM
     Route: 048
     Dates: start: 20101129, end: 20110503
  15. CALCIUM [Concomitant]
     Dosage: 4 MILLIGRAM
     Route: 048
     Dates: start: 20110509, end: 20110520
  16. METOPROLOL TARTRATE [Concomitant]
     Dosage: 5 MILLIGRAM
     Route: 041
     Dates: start: 20110322, end: 20110322
  17. PHYTOMENADION [Concomitant]
     Dosage: 20 DROPS
     Route: 048
     Dates: start: 20110416, end: 20110427
  18. FUROSEMIDE [Concomitant]
     Dosage: 80 MILLIGRAM
     Route: 048
     Dates: start: 20110509, end: 20110516
  19. ACETYLCYSTEINE [Concomitant]
     Indication: CHRONIC OBSTRUCTIVE PULMONARY DISEASE
     Dosage: 600 MILLIGRAM
     Route: 048
     Dates: start: 20110324, end: 20110402
  20. AMIODARONE HCL [Concomitant]
     Dosage: 300 MILLIGRAM
     Route: 041
     Dates: start: 20110322, end: 20110322
  21. PHYTOMENADION [Concomitant]
     Indication: PROPHYLAXIS
     Dosage: 10 DROPS
     Route: 048
     Dates: start: 20110313, end: 20110321
  22. PHYTOMENADION [Concomitant]
     Dosage: 20 MILLIGRAM
     Route: 041
     Dates: start: 20110315, end: 20110316
  23. NEBIVOLOL HCL [Concomitant]
     Dosage: 5 MILLIGRAM
     Route: 048
     Dates: start: 20110323, end: 20110323
  24. FUROSEMIDE [Concomitant]
     Dosage: 20 MILLIGRAM
     Route: 048
     Dates: start: 20110504, end: 20110508
  25. AMIODARONE HCL [Concomitant]
     Route: 041
     Dates: start: 20110504
  26. FUROSEMIDE [Concomitant]
     Dosage: 40 MILLIGRAM
     Route: 041
     Dates: start: 20110418, end: 20110418
  27. HYDROCHLOROTHIAZID [Concomitant]
     Dosage: 12.5 MILLIGRAM
     Route: 048
     Dates: start: 20110324, end: 20110402
  28. MOTROPIUM KATION [Concomitant]
     Indication: CHRONIC OBSTRUCTIVE PULMONARY DISEASE
     Dosage: 1 STROKE
     Route: 055
     Dates: start: 20110323, end: 20110408
  29. LENALIDOMIDE [Suspect]
     Route: 048
     Dates: start: 20110419
  30. TIOTROPIUM [Concomitant]
     Indication: CHRONIC OBSTRUCTIVE PULMONARY DISEASE
     Dosage: 1 INHALATION
     Route: 055
     Dates: start: 20110323
  31. MOTROPIUM KATION [Concomitant]
     Dosage: 1 INHALATION UNIT.
     Route: 055
     Dates: start: 20110504
  32. CHOLECALCIFEROL [Concomitant]
     Indication: OSTEOPOROSIS
     Dosage: 400 IU (INTERNATIONAL UNIT)
     Route: 048
     Dates: start: 20110321
  33. AMIODARONE HCL [Concomitant]
     Dosage: 1000 MILLIGRAM
     Route: 048
     Dates: start: 20110322, end: 20110327
  34. PANTOPRAZOLE SODIUM [Concomitant]
     Dosage: 20 MILLIGRAM
     Route: 048
     Dates: start: 20110312, end: 20110624
  35. TRAMADOL HCL [Concomitant]
     Dosage: 200 MILLIGRAM
     Route: 048
     Dates: start: 20110311, end: 20110321
  36. ENOXAPARIN [Concomitant]
     Dosage: 1 MILLILITER
     Route: 058
     Dates: start: 20110321, end: 20110405
  37. DEFERASIROX [Concomitant]
     Dosage: 1500 MILLIGRAM
     Route: 048
     Dates: start: 20110504, end: 20110511
  38. ENALAPRIL [Concomitant]
     Dosage: 2.5 MILLIGRAM
     Route: 048
     Dates: start: 20110615
  39. ENOXAPARIN [Concomitant]
     Indication: THROMBOSIS PROPHYLAXIS
     Dosage: .4 MILLILITER
     Route: 058
     Dates: start: 20110311, end: 20110321
  40. ENOXAPARIN [Concomitant]
     Dosage: .4 MILLIGRAM
     Route: 058
     Dates: start: 20110420, end: 20110427
  41. ENOXAPARIN [Concomitant]
     Dosage: 1 MILLIGRAM
     Route: 058
     Dates: start: 20110504
  42. NEBIVOLOL HCL [Concomitant]
     Dosage: 2.5 MILLIGRAM
     Route: 048
     Dates: start: 20110324, end: 20110329

REACTIONS (1)
  - LUNG SQUAMOUS CELL CARCINOMA STAGE UNSPECIFIED [None]
